FAERS Safety Report 4858382-2 (Version None)
Quarter: 2005Q4

REPORT INFORMATION
  Report Type: 
  Country: None (occurrence: None)
  Receive Date: 20051219
  Receipt Date: 20050802
  Transmission Date: 20060501
  Serious: No
  Sender: FDA-Public Use
  Company Number: US-GLAXOSMITHKLINE-A0568589A

PATIENT
  Age: 46 Year
  Sex: Female

DRUGS (3)
  1. NICODERM CQ [Suspect]
     Dates: start: 20050729
  2. NICORETTE OTC, ORANGE [Suspect]
  3. XANAX [Concomitant]

REACTIONS (3)
  - ABNORMAL DREAMS [None]
  - DIZZINESS [None]
  - INTENTIONAL DRUG MISUSE [None]
